FAERS Safety Report 5515041-0 (Version None)
Quarter: 2007Q4

REPORT INFORMATION
  Report Type: 
  Country: None (occurrence: None)
  Receive Date: 20071113
  Receipt Date: 20061128
  Transmission Date: 20080405
  Serious: No
  Sender: FDA-Public Use
  Company Number: A0628978A

PATIENT
  Age: 86 Year
  Sex: Male

DRUGS (6)
  1. COREG [Suspect]
     Dosage: 50MG PER DAY
     Route: 048
     Dates: start: 20061018, end: 20061122
  2. AMIODARONE HCL [Concomitant]
  3. BUMETANIDE [Concomitant]
  4. PROSCAR [Concomitant]
  5. CREON [Concomitant]
  6. SINEMET [Concomitant]

REACTIONS (2)
  - FATIGUE [None]
  - WEIGHT INCREASED [None]
